FAERS Safety Report 8319570-6 (Version None)
Quarter: 2012Q2

REPORT INFORMATION
  Report Type: 
  Country: None (occurrence: None)
  Receive Date: 20120427
  Receipt Date: 20120424
  Transmission Date: 20120825
  Serious: Yes (Other)
  Sender: FDA-Public Use
  Company Number: PHEH2012US002960

PATIENT
  Sex: Female
  Weight: 72.562 kg

DRUGS (4)
  1. MULTI-VITAMINS [Concomitant]
     Dosage: UNK UKN, QD
     Route: 048
     Dates: start: 20100301
  2. NEURONTIN [Concomitant]
     Indication: PAIN
     Dosage: 300 MG, BID
     Route: 048
     Dates: start: 20100301
  3. GILENYA [Suspect]
     Indication: MULTIPLE SCLEROSIS
     Dosage: 0.5 MG, QD
     Route: 048
     Dates: start: 20120110
  4. CYMBALTA [Concomitant]
     Dosage: 60 MG, QD
     Route: 048
     Dates: start: 20100301

REACTIONS (2)
  - ABDOMINAL PAIN UPPER [None]
  - ABDOMINAL DISCOMFORT [None]
